FAERS Safety Report 4840632-X (Version None)
Quarter: 2005Q4

REPORT INFORMATION
  Report Type: 
  Country: None (occurrence: None)
  Receive Date: 20051129
  Receipt Date: 20051129
  Transmission Date: 20060501
  Serious: Yes (Other)
  Sender: FDA-Public Use
  Company Number: None

PATIENT
  Age: 41 Year
  Sex: Female
  Weight: 79.3795 kg

DRUGS (2)
  1. CLINDAMYCIN 150 MG CAPSULES RANBAXY [Suspect]
     Indication: UPPER RESPIRATORY TRACT INFECTION BACTERIAL
     Dosage: 150 MG 4X A DAY PO
     Route: 048
     Dates: start: 20051110, end: 20051119
  2. BOTOX ALLERGAN [Suspect]
     Indication: TORTICOLLIS
     Dosage: EVERY 3 MONTHS IM
     Route: 030
     Dates: start: 20050301, end: 20050916

REACTIONS (2)
  - DRUG PRESCRIBING ERROR [None]
  - MEDICATION ERROR [None]
